FAERS Safety Report 9537293 (Version 1)
Quarter: 2013Q3

REPORT INFORMATION
  Report Type: Report from Study
  Country: MX (occurrence: MX)
  Receive Date: 20130919
  Receipt Date: 20130919
  Transmission Date: 20140515
  Serious: Yes (Hospitalization)
  Sender: FDA-Public Use
  Company Number: PHHY2013MX103627

PATIENT
  Age: 84 Year
  Sex: Female

DRUGS (3)
  1. DIOVAN [Suspect]
     Indication: HYPERTENSION
     Dosage: 160 MG, DAILY
  2. DIOVAN [Suspect]
     Dosage: 80 MG, DAILY
  3. STALEVO [Concomitant]
     Dosage: 3 DF (200/100/25 MG), DAILY
     Route: 048
     Dates: start: 201307

REACTIONS (1)
  - Bronchitis [Recovered/Resolved]
